FAERS Safety Report 24654669 (Version 1)
Quarter: 2024Q4

REPORT INFORMATION
  Report Type: Spontaneous
  Country: US (occurrence: US)
  Receive Date: 20241122
  Receipt Date: 20241122
  Transmission Date: 20250115
  Serious: No
  Sender: NOVO NORDISK
  Company Number: US-NOVOPROD-1177691

PATIENT
  Sex: Female

DRUGS (1)
  1. FIASP [Suspect]
     Active Substance: INSULIN ASPART
     Indication: Product used for unknown indication
     Dosage: 7 IU, TID
     Route: 058

REACTIONS (5)
  - Arthritis [Unknown]
  - Fall [Unknown]
  - Sciatica [Unknown]
  - Blood glucose decreased [Unknown]
  - Device issue [Not Recovered/Not Resolved]
